FAERS Safety Report 21977667 (Version 3)
Quarter: 2023Q1

REPORT INFORMATION
  Report Type: Report from Study
  Country: CN (occurrence: CN)
  Receive Date: 20230210
  Receipt Date: 20230223
  Transmission Date: 20230418
  Serious: Yes (Hospitalization, Other)
  Sender: FDA-Public Use
  Company Number: CN-BoehringerIngelheim-2022-BI-204279

PATIENT
  Age: 74 Year
  Sex: Female
  Weight: 69 kg

DRUGS (4)
  1. NINTEDANIB [Suspect]
     Active Substance: NINTEDANIB
     Indication: Interstitial lung disease
     Route: 048
     Dates: start: 20221027, end: 20221118
  2. PREDNISONE ACETATE [Concomitant]
     Active Substance: PREDNISONE ACETATE
     Indication: Interstitial lung disease
     Route: 048
     Dates: start: 202207
  3. Lansoprazole enteric coated tablet [Concomitant]
     Indication: Gastrointestinal disorder prophylaxis
     Dosage: 2 TABLETS?ENTERIC COATED TABLET
     Route: 048
     Dates: start: 20220303
  4. Calcium carbonate D3 Tablet [Concomitant]
     Indication: Osteoporosis prophylaxis
     Dosage: 1 TABLET
     Route: 048
     Dates: start: 20220303

REACTIONS (1)
  - Angina unstable [Not Recovered/Not Resolved]

NARRATIVE: CASE EVENT DATE: 20221118
